FAERS Safety Report 7770126-3 (Version None)
Quarter: 2011Q3

REPORT INFORMATION
  Report Type: 
  Country: None (occurrence: None)
  Receive Date: 20110922
  Receipt Date: 20110916
  Transmission Date: 20111222
  Serious: Yes (Life-Threatening, Hospitalization, Other)
  Sender: FDA-Public Use
  Company Number: JP-ROCHE-801543

PATIENT
  Sex: Female
  Weight: 44 kg

DRUGS (6)
  1. LIVALO [Concomitant]
     Route: 048
  2. ALENDRONATE SODIUM [Concomitant]
     Route: 048
  3. ACTEMRA [Suspect]
     Indication: RHEUMATOID ARTHRITIS
     Dosage: DOSAGE UNCERTAIN
     Route: 041
     Dates: start: 20100501, end: 20110722
  4. FAMOTIDINE INTRAVENOUS [Concomitant]
     Route: 048
  5. CELECOXIB [Concomitant]
     Route: 048
  6. PREDNISONE [Concomitant]
     Dosage: NOTE: 10-510
     Route: 048
     Dates: start: 20070114

REACTIONS (3)
  - INTERSTITIAL LUNG DISEASE [None]
  - CHRONIC MYELOMONOCYTIC LEUKAEMIA [None]
  - PYELONEPHRITIS ACUTE [None]
